FAERS Safety Report 4655582-1 (Version None)
Quarter: 2005Q2

REPORT INFORMATION
  Report Type: 
  Country: None (occurrence: None)
  Receive Date: 20050505
  Receipt Date: 20050425
  Transmission Date: 20051028
  Serious: Yes (Other)
  Sender: FDA-Public Use
  Company Number: 2005017533

PATIENT
  Age: 77 Year
  Sex: Male
  Weight: 100.6985 kg

DRUGS (6)
  1. BEXTRA [Suspect]
     Indication: PAIN
     Dosage: 20 MG (20 MG, 1 IN 1 D), ORAL
     Route: 048
     Dates: start: 20041001, end: 20041115
  2. BENAZEPRIL HCL [Concomitant]
  3. METOPROLOL TARTRATE [Concomitant]
  4. EZETIMIBE/ SIMVASTATIN (EZETIMIBE, SIMVASTATIN) [Concomitant]
  5. PRAVASTATIN SODIUM [Concomitant]
  6. INDAPAMIDE [Concomitant]

REACTIONS (13)
  - ARTHRALGIA [None]
  - BLUE TOE SYNDROME [None]
  - CONTUSION [None]
  - CYANOSIS [None]
  - CYST [None]
  - EMBOLISM [None]
  - MUSCULOSKELETAL STIFFNESS [None]
  - NIGHT CRAMPS [None]
  - PIGMENTATION DISORDER [None]
  - RASH [None]
  - SKIN DISCOLOURATION [None]
  - THROMBOSIS [None]
  - VARICOSE VEIN [None]
